FAERS Safety Report 21411025 (Version 4)
Quarter: 2022Q4

REPORT INFORMATION
  Report Type: Spontaneous
  Country: TH (occurrence: TH)
  Receive Date: 20221005
  Receipt Date: 20221202
  Transmission Date: 20230112
  Serious: Yes (Death, Life-Threatening, Hospitalization, Other)
  Sender: FDA-Public Use
  Company Number: TH-MLMSERVICE-20220919-3802587-1

PATIENT
  Age: 68 Year
  Sex: Female
  Weight: 45 kg

DRUGS (5)
  1. PACLITAXEL [Suspect]
     Active Substance: PACLITAXEL
     Indication: Metastases to lymph nodes
     Dosage: 175 MG/M2, EVERY 3 WEEKS (ALSO REPORTED AS EVERY 4 WEEKS)
     Route: 042
  2. PACLITAXEL [Suspect]
     Active Substance: PACLITAXEL
     Indication: Metastases to ovary
  3. PACLITAXEL [Suspect]
     Active Substance: PACLITAXEL
     Indication: Ureteric cancer
  4. SIMVASTATIN [Concomitant]
     Active Substance: SIMVASTATIN
     Dosage: 20 MG
  5. LOSARTAN [Concomitant]
     Active Substance: LOSARTAN
     Dosage: 50 MG

REACTIONS (9)
  - Interstitial lung disease [Fatal]
  - Anaemia [Fatal]
  - Gastrooesophageal reflux disease [Fatal]
  - Disseminated intravascular coagulation [Fatal]
  - Thrombocytopenia [Fatal]
  - Thrombotic microangiopathy [Fatal]
  - Acute kidney injury [Fatal]
  - Systemic scleroderma [Fatal]
  - Scleroderma renal crisis [Fatal]
